FAERS Safety Report 15930443 (Version 1)
Quarter: 2019Q1

REPORT INFORMATION
  Report Type: Spontaneous
  Country: US (occurrence: US)
  Receive Date: 20190115
  Receipt Date: 20190115
  Transmission Date: 20190417
  Serious: No
  Sender: FDA-Public Use
  Company Number: None

PATIENT
  Age: 62 Year
  Sex: Male

DRUGS (1)
  1. HUMIRA [Suspect]
     Active Substance: ADALIMUMAB
     Indication: MYOCARDITIS INFECTIOUS
     Route: 058
     Dates: start: 20160109

REACTIONS (3)
  - Fat tissue increased [None]
  - Lethargy [None]
  - Vision blurred [None]

NARRATIVE: CASE EVENT DATE: 20190101
